FAERS Safety Report 4461205-7 (Version None)
Quarter: 2004Q3

REPORT INFORMATION
  Report Type: 
  Country: None (occurrence: None)
  Receive Date: 20040923
  Receipt Date: 20040913
  Transmission Date: 20050211
  Serious: Yes (Death, Hospitalization)
  Sender: FDA-Public Use
  Company Number: US-JNJFOC-20040903704

PATIENT
  Age: 45 Year
  Sex: Male

DRUGS (4)
  1. ACETAMINOPHEN [Suspect]
     Indication: ABDOMINAL PAIN
     Dosage: ORAL
     Route: 048
  2. ASPIRIN [Suspect]
     Indication: INTENTIONAL MISUSE
     Dosage: ORAL
     Route: 048
  3. PYRIDOXINE (PYRIDOXINE) [Suspect]
     Indication: TUBERCULIN TEST
     Dosage: ORAL
     Route: 048
  4. ISONIAZID [Suspect]
     Indication: TUBERCULIN TEST
     Dosage: ORAL
     Route: 048

REACTIONS (25)
  - ABDOMINAL PAIN [None]
  - BLOOD CREATININE INCREASED [None]
  - COAGULOPATHY [None]
  - COMA [None]
  - CRACKLES LUNG [None]
  - DEPRESSED LEVEL OF CONSCIOUSNESS [None]
  - DEPRESSION [None]
  - DRUG LEVEL INCREASED [None]
  - EMOTIONAL DISTRESS [None]
  - EPIGASTRIC DISCOMFORT [None]
  - GASTROINTESTINAL HAEMORRHAGE [None]
  - GENERAL PHYSICAL HEALTH DETERIORATION [None]
  - HAEMATEMESIS [None]
  - HEPATIC NECROSIS [None]
  - HEPATIC STEATOSIS [None]
  - HYPOTENSION [None]
  - INTERNATIONAL NORMALISED RATIO INCREASED [None]
  - KUSSMAUL RESPIRATION [None]
  - LACTIC ACIDOSIS [None]
  - LOSS OF EMPLOYMENT [None]
  - MYOCARDIAL INFARCTION [None]
  - OVERDOSE [None]
  - PROTHROMBIN TIME PROLONGED [None]
  - SEDATION [None]
  - TUBERCULIN TEST POSITIVE [None]
